FAERS Safety Report 8765818 (Version 1)
Quarter: 2012Q4

REPORT INFORMATION
  Report Type: 
  Country: US (occurrence: US)
  Receive Date: 20120903
  Receipt Date: 20120903
  Transmission Date: 20130627
  Serious: No
  Sender: FDA-Public Use
  Company Number: US-PFIZER INC-2012214697

PATIENT
  Age: 50 Year
  Sex: Female
  Weight: 68.03 kg

DRUGS (8)
  1. CELEBREX [Suspect]
     Indication: DEPRESSION
     Dosage: UNK
  2. CELEBREX [Suspect]
     Indication: NEURALGIA
  3. ADDERALL [Concomitant]
     Indication: ATTENTION DEFICIT/HYPERACTIVITY DISORDER
     Dosage: 10 mg, 3x/day
  4. CLONAZEPAM [Concomitant]
     Indication: INSOMNIA
     Dosage: 2 mg, daily
  5. PRAVASTATIN [Concomitant]
     Indication: BLOOD CHOLESTEROL ABNORMAL
     Dosage: 20 mg, daily
  6. FAMOTIDINE [Concomitant]
     Indication: ABDOMINAL DISCOMFORT
     Dosage: 20 mg, 2x/day
  7. SERTRALINE [Concomitant]
     Indication: DEPRESSION
     Dosage: 100 mg, 1x/day
     Dates: start: 201206
  8. LOSARTAN/HYDROCHLOROTHIAZIDE [Concomitant]
     Indication: HYPERTENSION
     Dosage: 50/12.5mg tablet, daily

REACTIONS (2)
  - Urticaria [Recovered/Resolved]
  - Off label use [Unknown]
